FAERS Safety Report 25273832 (Version 1)
Quarter: 2025Q2

REPORT INFORMATION
  Report Type: Spontaneous
  Country: SE (occurrence: SE)
  Receive Date: 20250506
  Receipt Date: 20250506
  Transmission Date: 20250717
  Serious: Yes (Other)
  Sender: INSUD PHARMA
  Company Number: None

PATIENT
  Age: 41 Year
  Sex: Female
  Weight: 80 kg

DRUGS (2)
  1. DROSPIRENONE [Suspect]
     Active Substance: DROSPIRENONE
     Indication: Polycystic ovarian syndrome
     Dosage: 1 TABLETT PER DAG
     Dates: start: 20250323, end: 20250418
  2. DROSPIRENONE [Suspect]
     Active Substance: DROSPIRENONE
     Indication: Premenstrual syndrome

REACTIONS (5)
  - Depressed mood [Not Recovered/Not Resolved]
  - Personality change [Unknown]
  - Nightmare [Not Recovered/Not Resolved]
  - Hyperhidrosis [Not Recovered/Not Resolved]
  - Negative thoughts [Unknown]

NARRATIVE: CASE EVENT DATE: 20250101
